FAERS Safety Report 18781555 (Version 1)
Quarter: 2021Q1

REPORT INFORMATION
  Report Type: Spontaneous
  Country: US (occurrence: US)
  Receive Date: 20210125
  Receipt Date: 20210125
  Transmission Date: 20210419
  Serious: No
  Sender: FDA-Public Use
  Company Number: US-GLAXOSMITHKLINE-US2021010474

PATIENT
  Age: 68 Year
  Sex: Female

DRUGS (2)
  1. NUCALA [Suspect]
     Active Substance: MEPOLIZUMAB
     Indication: ASTHMA
     Dosage: 100 MG, VA
     Route: 058
     Dates: start: 20200114
  2. NUCALA [Suspect]
     Active Substance: MEPOLIZUMAB
     Indication: EOSINOPHILIC PNEUMONIA CHRONIC

REACTIONS (3)
  - Device use error [Unknown]
  - Injection site erythema [Not Recovered/Not Resolved]
  - Injection site pruritus [Not Recovered/Not Resolved]

NARRATIVE: CASE EVENT DATE: 20210112
